FAERS Safety Report 6430896-3 (Version None)
Quarter: 2009Q4

REPORT INFORMATION
  Report Type: 
  Country: None (occurrence: None)
  Receive Date: 20091106
  Receipt Date: 20091027
  Transmission Date: 20100525
  Serious: Yes (Other)
  Sender: FDA-Public Use
  Company Number: AT-B.I. PHARMACEUTICALS,INC./RIDGEFIELD-2009-DE-06708GD

PATIENT
  Age: 74 Year
  Sex: Male

DRUGS (7)
  1. PRAMIPEXOLE [Suspect]
     Indication: PARKINSON'S DISEASE
     Dosage: 2.1 MG
  2. SERTRALINE HCL [Suspect]
     Indication: PATHOLOGICAL GAMBLING
     Dosage: 100 MG
  3. SERTRALINE HCL [Suspect]
     Indication: MOOD SWINGS
  4. LEVODOPA/CARBIDOPA/ENTACAPONE [Suspect]
     Indication: PARKINSON'S DISEASE
     Dosage: 600 MG LEVODOPA
     Route: 048
  5. LEVODOPA/CARBIDOPA/ENTACAPONE [Suspect]
     Dosage: 750 MG LEVODOPA, 1 G ENTACAPONE
     Route: 048
  6. QUETIAPINE [Suspect]
     Indication: PATHOLOGICAL GAMBLING
     Dosage: 200 MG
  7. QUETIAPINE [Suspect]
     Indication: MOOD SWINGS

REACTIONS (7)
  - CHOREA [None]
  - DRUG INEFFECTIVE [None]
  - DYSKINESIA [None]
  - MOOD SWINGS [None]
  - ON AND OFF PHENOMENON [None]
  - PATHOLOGICAL GAMBLING [None]
  - STEREOTYPY [None]
